FAERS Safety Report 9527850 (Version 1)
Quarter: 2013Q3

REPORT INFORMATION
  Report Type: Spontaneous
  Country: US (occurrence: US)
  Receive Date: 20130917
  Receipt Date: 20130917
  Transmission Date: 20140515
  Serious: No
  Sender: FDA-Public Use
  Company Number: US-PFIZER INC-2013262933

PATIENT
  Age: 65 Year
  Sex: Female
  Weight: 60 kg

DRUGS (6)
  1. CORTISONE [Suspect]
     Indication: CARPAL TUNNEL SYNDROME
     Dosage: UNK
     Dates: start: 20130816
  2. CORTISONE [Suspect]
     Indication: PAIN IN EXTREMITY
  3. CORTISONE [Suspect]
     Indication: BURNING SENSATION
  4. CORTISONE [Suspect]
     Indication: PARAESTHESIA
  5. CORTISONE [Suspect]
     Indication: HYPOAESTHESIA
  6. VALACICLOVIR [Concomitant]
     Dosage: UNK

REACTIONS (1)
  - Drug intolerance [Unknown]
